FAERS Safety Report 10030117 (Version 2)
Quarter: 2014Q1

REPORT INFORMATION
  Report Type: Spontaneous
  Country: US (occurrence: US)
  Receive Date: 20140323
  Receipt Date: 20140323
  Transmission Date: 20141002
  Serious: No
  Sender: FDA-Public Use
  Company Number: US-ALLERGAN-1311428US

PATIENT
  Sex: 0

DRUGS (3)
  1. LATISSE 0.03% [Suspect]
     Indication: GROWTH OF EYELASHES
     Dosage: 2 GTT, QHS
     Route: 061
  2. INJECTIONS FOR MULTIPLE SCLEROSIS [Concomitant]
     Indication: MULTIPLE SCLEROSIS
     Dosage: UNK, QOD
  3. MEDICATION FOR HIGH BLOOD PRESSURE [Concomitant]
     Indication: HYPERTENSION

REACTIONS (1)
  - Ocular hyperaemia [Recovering/Resolving]
